FAERS Safety Report 24458009 (Version 1)
Quarter: 2024Q4

REPORT INFORMATION
  Report Type: Spontaneous
  Country: US (occurrence: US)
  Receive Date: 20241018
  Receipt Date: 20241018
  Transmission Date: 20250115
  Serious: No
  Sender: ROCHE
  Company Number: US-ROCHE-3440772

PATIENT
  Age: 77 Year
  Sex: Male
  Weight: 88.0 kg

DRUGS (1)
  1. CATHFLO ACTIVASE [Suspect]
     Active Substance: ALTEPLASE
     Indication: Product used for unknown indication
     Route: 034
     Dates: start: 20231012, end: 20231014

REACTIONS (4)
  - Haematoma [Recovering/Resolving]
  - Haemorrhage [Recovering/Resolving]
  - Blister [Recovering/Resolving]
  - Off label use [Unknown]

NARRATIVE: CASE EVENT DATE: 20231012
